FAERS Safety Report 19272717 (Version 2)
Quarter: 2021Q2

REPORT INFORMATION
  Report Type: Spontaneous
  Country: GB (occurrence: GB)
  Receive Date: 20210518
  Receipt Date: 20210628
  Transmission Date: 20210717
  Serious: Yes (Other)
  Sender: FDA-Public Use
  Company Number: NVSC2021GB106395

PATIENT
  Age: 65 Year
  Sex: Male
  Weight: 75 kg

DRUGS (11)
  1. CIPROFLOXACINE [Suspect]
     Active Substance: CIPROFLOXACIN
     Dosage: UNK  (PL 17907/0015)
     Route: 065
     Dates: start: 20210510
  2. HYLO TEAR [Concomitant]
     Indication: ILL-DEFINED DISORDER
     Dosage: UNK, PRN, USE AS DIRECTED
     Route: 065
     Dates: start: 20200615
  3. CELECOXIB. [Concomitant]
     Active Substance: CELECOXIB
     Indication: ILL-DEFINED DISORDER
     Dosage: 1 DF, BID (TAKE ONE TWICE DAILY AS REQUIRED)
     Route: 065
     Dates: start: 20191108
  4. NITROFURANTOIN. [Concomitant]
     Active Substance: NITROFURANTOIN
     Indication: ILL-DEFINED DISORDER
     Dosage: 1 DF, BID (FOR 7 DAYS)
     Route: 065
     Dates: start: 20210409, end: 20210416
  5. EMICIZUMAB. [Concomitant]
     Active Substance: EMICIZUMAB
     Indication: ILL-DEFINED DISORDER
     Dosage: UNK
     Route: 065
     Dates: start: 20210426
  6. CIPROFLOXACIN. [Concomitant]
     Active Substance: CIPROFLOXACIN
     Indication: ILL-DEFINED DISORDER
     Dosage: 1 DF, BID (FOR 2 WEEKS)
     Route: 065
     Dates: start: 20210426, end: 20210510
  7. OMEPRAZOLE. [Concomitant]
     Active Substance: OMEPRAZOLE
     Indication: ILL-DEFINED DISORDER
     Dosage: 1 DF, QD (WHEN TAKING CELECOXIB)
     Route: 065
     Dates: start: 20210510
  8. CIPROFLOXACIN. [Suspect]
     Active Substance: CIPROFLOXACIN
     Indication: ILL-DEFINED DISORDER
     Dosage: 500 MG (TABLET)
     Route: 065
     Dates: start: 20210510
  9. ATORVASTATIN [Concomitant]
     Active Substance: ATORVASTATIN
     Indication: ILL-DEFINED DISORDER
     Dosage: 1 DF, QD
     Route: 065
     Dates: start: 20200615
  10. INDAPAMIDE. [Concomitant]
     Active Substance: INDAPAMIDE
     Indication: ILL-DEFINED DISORDER
     Dosage: 1 DF, QD (EACH MORNING)
     Route: 065
     Dates: start: 20190515
  11. TRIMETHOPRIM. [Concomitant]
     Active Substance: TRIMETHOPRIM
     Indication: ILL-DEFINED DISORDER
     Dosage: 1 DF, BID (FOR 2 WEEKS)
     Route: 065
     Dates: start: 20210504

REACTIONS (1)
  - Tendonitis [Not Recovered/Not Resolved]

NARRATIVE: CASE EVENT DATE: 20210510
